FAERS Safety Report 13031579 (Version 8)
Quarter: 2017Q2

REPORT INFORMATION
  Report Type: Spontaneous
  Country: BR (occurrence: BR)
  Receive Date: 20161215
  Receipt Date: 20170506
  Transmission Date: 20170830
  Serious: Yes (Hospitalization, Other)
  Sender: FDA-Public Use
  Company Number: BR-AMGEN-BRASP2016176893

PATIENT
  Age: 62 Year
  Sex: Female

DRUGS (4)
  1. ENBREL [Suspect]
     Active Substance: ETANERCEPT
     Indication: PRODUCT USED FOR UNKNOWN INDICATION
     Dosage: UNK
     Route: 065
     Dates: start: 201610
  2. ENBREL [Suspect]
     Active Substance: ETANERCEPT
     Dosage: UNK
     Route: 065
     Dates: start: 20170201
  3. ENBREL [Suspect]
     Active Substance: ETANERCEPT
     Dosage: UNK
     Route: 065
     Dates: start: 201701
  4. ENBREL [Suspect]
     Active Substance: ETANERCEPT
     Dosage: UNK
     Route: 065
     Dates: start: 201612

REACTIONS (15)
  - Pyrexia [Unknown]
  - Pain [Not Recovered/Not Resolved]
  - Finger deformity [Unknown]
  - Intervertebral disc protrusion [Unknown]
  - Visual impairment [Unknown]
  - Pain in extremity [Unknown]
  - Mobility decreased [Unknown]
  - Spinal disorder [Unknown]
  - Musculoskeletal pain [Unknown]
  - Abasia [Unknown]
  - Infection [Unknown]
  - Immunodeficiency [Unknown]
  - Arthralgia [Unknown]
  - Erythema [Unknown]
  - Peripheral swelling [Unknown]

NARRATIVE: CASE EVENT DATE: 2016
